FAERS Safety Report 12108819 (Version 2)
Quarter: 2025Q4

REPORT INFORMATION
  Report Type: Spontaneous
  Country: IN (occurrence: IN)
  Receive Date: 20160224
  Receipt Date: 20251119
  Transmission Date: 20260119
  Serious: Yes (Death, Other)
  Sender: SANOFI AVENTIS
  Company Number: IN-SA-2016SA035590

PATIENT
  Age: 40 Year
  Sex: Male

DRUGS (3)
  1. ANTI-THYMOCYTE GLOBULIN (RABBIT) NOS [Suspect]
     Active Substance: LAPINE T-LYMPHOCYTE IMMUNE GLOBULIN
     Indication: Immunosuppression
     Dosage: UNK
  2. CYCLOSPORINE [Suspect]
     Active Substance: CYCLOSPORINE
     Indication: Immunosuppression
     Dosage: UNK
  3. MYCOPHENOLATE MOFETIL [Suspect]
     Active Substance: MYCOPHENOLATE MOFETIL
     Indication: Immunosuppression
     Dosage: UNK

REACTIONS (4)
  - Fungal abscess central nervous system [Fatal]
  - Scedosporium infection [Fatal]
  - Hemiparesis [Unknown]
  - Somnolence [Unknown]
